FAERS Safety Report 6917597-X (Version None)
Quarter: 2010Q3

REPORT INFORMATION
  Report Type: 
  Country: None (occurrence: None)
  Receive Date: 20100810
  Receipt Date: 20081222
  Transmission Date: 20110219
  Serious: No
  Sender: FDA-Public Use
  Company Number: US-PFIZER INC-2008158185

PATIENT
  Sex: Female
  Weight: 59.874 kg

DRUGS (5)
  1. LIPITOR [Suspect]
     Dates: start: 20080601, end: 20081218
  2. HYDROCHLOROTHIAZIDE [Concomitant]
     Indication: HYPERTENSION
  3. POTASSIUM [Concomitant]
     Indication: HYPERTENSION
  4. LISINOPRIL [Concomitant]
  5. STATINS [Concomitant]
     Indication: HYPERTENSION

REACTIONS (1)
  - HEPATIC ENZYME INCREASED [None]
